FAERS Safety Report 7374478-8 (Version None)
Quarter: 2011Q1

REPORT INFORMATION
  Report Type: 
  Country: None (occurrence: None)
  Receive Date: 20110325
  Receipt Date: 20110128
  Transmission Date: 20110831
  Serious: Yes (Other)
  Sender: FDA-Public Use
  Company Number: US-MYLANLABS-2011S1000597

PATIENT
  Age: 89 Year
  Sex: Female
  Weight: 47.63 kg

DRUGS (18)
  1. DILANTIN [Concomitant]
  2. FELODIPINE [Concomitant]
  3. ZOLOFT [Concomitant]
  4. FOLIC ACID [Concomitant]
  5. CYCLOBENZAPRINE [Concomitant]
     Dates: start: 20101227, end: 20101227
  6. LABETALOL [Concomitant]
  7. FENTANYL-100 [Suspect]
     Indication: LUMBAR VERTEBRAL FRACTURE
     Dosage: Q 72 HOURS
     Route: 062
     Dates: start: 20101230
  8. FENTANYL-100 [Suspect]
     Indication: FRACTURED COCCYX
     Dosage: Q 72 HOURS
     Route: 062
     Dates: start: 20101230
  9. STOOL SOFTENER [Concomitant]
  10. ASPIRIN [Concomitant]
  11. LEVOTHYROXINE SODIUM [Concomitant]
  12. POLYETHYLENE GLYCOL [Concomitant]
  13. OCUVITE /01053801/ [Concomitant]
  14. FENTANYL-100 [Suspect]
     Indication: BACK PAIN
     Dosage: Q 72 HOURS
     Route: 062
     Dates: start: 20101230
  15. TYLENOL (CAPLET) [Concomitant]
  16. FOSAMAX [Concomitant]
  17. CYCLOBENZAPRINE [Concomitant]
     Dates: start: 20101228, end: 20101228
  18. LIDODERM [Concomitant]
     Dosage: 12 OURS ON AND 12 HOURS OFF
     Dates: start: 20101228

REACTIONS (2)
  - CONSTIPATION [None]
  - ABDOMINAL PAIN [None]
